FAERS Safety Report 8609761-9 (Version None)
Quarter: 2012Q3

REPORT INFORMATION
  Report Type: 
  Country: None (occurrence: None)
  Receive Date: 20120821
  Receipt Date: 20120814
  Transmission Date: 20120928
  Serious: Yes (Hospitalization, Other)
  Sender: FDA-Public Use
  Company Number: US-PFIZER INC-2012162679

PATIENT
  Age: 63 Year
  Sex: Female
  Weight: 56.236 kg

DRUGS (5)
  1. AZITHROMYCIN [Suspect]
     Indication: INFECTION PARASITIC
     Dosage: UNK, ONE AND A QUARTER TEA SPOON TWO TIMES A DAY
     Route: 048
     Dates: start: 20120502, end: 20120706
  2. AZITHROMYCIN [Suspect]
     Dosage: UNK
     Dates: end: 20120706
  3. ACIDOPHILUS [Suspect]
     Dosage: UNK,DAILY; TWO HOURS BEFORE TAKING AZITHROMYCIN
     Route: 048
     Dates: start: 20120502, end: 20120706
  4. MEPRON [Suspect]
     Indication: INFECTION PARASITIC
     Dosage: UNK,ONE TEA SPOON TWO TIMES A DAY
     Route: 048
     Dates: start: 20120502, end: 20120706
  5. MEPRON [Suspect]
     Dosage: UNK
     Dates: end: 20120706

REACTIONS (5)
  - PERICARDIAL EFFUSION [None]
  - CHEST PAIN [None]
  - MYALGIA [None]
  - PAIN IN EXTREMITY [None]
  - NECK PAIN [None]
